FAERS Safety Report 7227233-3 (Version None)
Quarter: 2011Q1

REPORT INFORMATION
  Report Type: 
  Country: None (occurrence: None)
  Receive Date: 20110114
  Receipt Date: 20110112
  Transmission Date: 20110831
  Serious: Yes (Other)
  Sender: FDA-Public Use
  Company Number: A0889726A

PATIENT
  Age: 54 Year
  Sex: Female

DRUGS (3)
  1. ADVAIR [Suspect]
     Indication: CHRONIC OBSTRUCTIVE PULMONARY DISEASE
     Dosage: 1PUFF TWICE PER DAY
     Route: 055
     Dates: start: 20051001
  2. ALBUTEROL [Concomitant]
  3. MULTI-VITAMIN [Concomitant]

REACTIONS (7)
  - PRODUCT QUALITY ISSUE [None]
  - CHOKING [None]
  - FATIGUE [None]
  - ASTHENIA [None]
  - INHALATION THERAPY [None]
  - DYSPNOEA [None]
  - DRUG INEFFECTIVE [None]
